FAERS Safety Report 7704127-8 (Version None)
Quarter: 2011Q3

REPORT INFORMATION
  Report Type: 
  Country: None (occurrence: None)
  Receive Date: 20110823
  Receipt Date: 20110817
  Transmission Date: 20111222
  Serious: Yes (Hospitalization, Other)
  Sender: FDA-Public Use
  Company Number: KR-AMGEN-KORSP2011042050

PATIENT
  Age: 72 Year
  Sex: Female

DRUGS (15)
  1. TRIMETAZIDINE HYDROCHLORIDE [Concomitant]
     Dosage: UNK
     Dates: start: 20090714
  2. FERROUS SULFATE TAB [Concomitant]
     Dosage: UNK
     Dates: start: 20080114
  3. REBAMIPIDE [Concomitant]
     Dosage: UNK
     Route: 065
     Dates: start: 20090730
  4. OMEGA 3                            /00931501/ [Concomitant]
     Dosage: UNK
     Dates: start: 20100310
  5. CINACALCET HYDROCHLORIDE [Suspect]
     Indication: HYPERPARATHYROIDISM SECONDARY
     Dosage: UNK
     Route: 048
  6. SIMVASTATIN [Concomitant]
     Dosage: UNK
     Route: 065
     Dates: start: 20080114
  7. VITAMIN B/C COMPLEX [Concomitant]
     Dosage: UNK UNK, UNK
     Dates: start: 20080114
  8. VITAMIN B/C COMPLEX [Concomitant]
     Dosage: UNCERTAINTY
     Route: 065
     Dates: start: 20080114
  9. VITAMIN B/C COMPLEX [Concomitant]
     Dosage: UNCERTAINTY
     Route: 065
     Dates: start: 20100310
  10. ISOSORBIDE DINITRATE [Concomitant]
     Dosage: UNK
     Route: 065
     Dates: start: 20090714
  11. THIOCTIC ACID [Concomitant]
     Dosage: UNK
     Route: 065
     Dates: start: 20110307
  12. TELMISARTAN [Concomitant]
     Dosage: UNK
     Route: 065
     Dates: start: 20100126
  13. CARVEDILOL [Concomitant]
     Dosage: UNK
     Route: 065
     Dates: start: 20090518
  14. CALCITRIOL [Concomitant]
     Dosage: UNK
     Route: 065
     Dates: start: 20110512
  15. LANSOPRAZOLE [Concomitant]
     Dosage: UNK
     Route: 065
     Dates: start: 20110609

REACTIONS (1)
  - ACUTE MYOCARDIAL INFARCTION [None]
